FAERS Safety Report 4515667-7 (Version None)
Quarter: 2004Q4

REPORT INFORMATION
  Report Type: 
  Country: None (occurrence: None)
  Receive Date: 20041201
  Receipt Date: 20031202
  Transmission Date: 20050328
  Serious: Yes (Life-Threatening, Hospitalization)
  Sender: FDA-Public Use
  Company Number: US-MERCK-0312USA00367

PATIENT
  Age: 70 Year
  Sex: Female

DRUGS (14)
  1. FOSAMAX [Suspect]
     Indication: OSTEOPOROSIS
     Route: 048
     Dates: start: 20020101
  2. ALTACE [Concomitant]
     Route: 065
  3. ASPIRIN [Concomitant]
     Route: 065
  4. CALCIUM (UNSPECIFIED) [Concomitant]
     Route: 065
  5. CLARITIN [Concomitant]
     Route: 065
  6. FLORINEF [Concomitant]
     Route: 065
  7. LASIX [Concomitant]
     Route: 065
  8. LEXAPRO [Concomitant]
     Route: 065
  9. PROTONIX [Concomitant]
     Route: 065
  10. SYNTHROID [Concomitant]
     Route: 065
  11. TOPROL-XL [Concomitant]
     Route: 065
  12. ZOCOR [Concomitant]
     Route: 048
  13. VITAMINS (UNSPECIFIED) [Concomitant]
     Route: 065
  14. GLUCOSAMINE [Concomitant]
     Route: 065

REACTIONS (3)
  - BLOOD GLUCOSE DECREASED [None]
  - CHEST PAIN [None]
  - COUGH [None]
